FAERS Safety Report 18889741 (Version 1)
Quarter: 2021Q1

REPORT INFORMATION
  Report Type: Spontaneous
  Country: US (occurrence: US)
  Receive Date: 20210213
  Receipt Date: 20210213
  Transmission Date: 20210420
  Serious: No
  Sender: FDA-Public Use
  Company Number: US-TEVA-2021-US-1874578

PATIENT

DRUGS (1)
  1. CLONAZEPAM 5 MG [Suspect]
     Active Substance: CLONAZEPAM
     Route: 065

REACTIONS (2)
  - Palpitations [Unknown]
  - Product quality issue [Unknown]
